FAERS Safety Report 7314689-0 (Version None)
Quarter: 2011Q1

REPORT INFORMATION
  Report Type: 
  Country: None (occurrence: None)
  Receive Date: 20110225
  Receipt Date: 20101213
  Transmission Date: 20110831
  Serious: No
  Sender: FDA-Public Use
  Company Number: US-MYLANLABS-2010S1020671

PATIENT
  Age: 22 Year
  Sex: Male
  Weight: 108.86 kg

DRUGS (2)
  1. AMNESTEEM [Suspect]
     Route: 048
     Dates: end: 20101029
  2. AMNESTEEM [Suspect]
     Indication: ACNE CYSTIC
     Route: 048
     Dates: start: 20100701

REACTIONS (2)
  - DIARRHOEA [None]
  - MOOD SWINGS [None]
